FAERS Safety Report 24618307 (Version 1)
Quarter: 2024Q4

REPORT INFORMATION
  Report Type: Spontaneous
  Country: US (occurrence: US)
  Receive Date: 20241114
  Receipt Date: 20241114
  Transmission Date: 20250114
  Serious: No
  Sender: PAREXEL
  Company Number: US-HISAMITSU PHARMACEUTICAL CO., INC.-2024-NOV-US000203

PATIENT
  Sex: Male

DRUGS (2)
  1. SECUADO [Suspect]
     Active Substance: ASENAPINE
     Indication: Psychotic disorder
     Dosage: 7.6MG, EVERY OTHER DAY
     Route: 062
  2. SECUADO [Suspect]
     Active Substance: ASENAPINE
     Dosage: 7.6 MG, DAILY
     Route: 062

REACTIONS (3)
  - Hypersomnia [Not Recovered/Not Resolved]
  - Disorientation [Not Recovered/Not Resolved]
  - Off label use [Not Recovered/Not Resolved]
